FAERS Safety Report 16141702 (Version 6)
Quarter: 2021Q4

REPORT INFORMATION
  Report Type: Report from Study
  Country: US (occurrence: US)
  Receive Date: 20190401
  Receipt Date: 20211229
  Transmission Date: 20220303
  Serious: Yes (Other)
  Sender: FDA-Public Use
  Company Number: US-CLOVIS ONCOLOGY-CLO-2019-000220

PATIENT
  Sex: Female

DRUGS (2)
  1. RUBRACA [Suspect]
     Active Substance: RUCAPARIB CAMSYLATE
     Indication: Ovarian cancer
     Dosage: 600 MG, BID
     Route: 048
     Dates: start: 20190118, end: 20210310
  2. RUBRACA [Suspect]
     Active Substance: RUCAPARIB CAMSYLATE
     Dosage: DOSE 1200, QTY 120, DAY SUPPLY 30
     Route: 048
     Dates: start: 201901

REACTIONS (24)
  - Malignant neoplasm progression [Unknown]
  - Large intestine polyp [Unknown]
  - Vitamin D decreased [Not Recovered/Not Resolved]
  - Dry mouth [Unknown]
  - Feeling abnormal [Unknown]
  - Apathy [Unknown]
  - Stress [Unknown]
  - Hypoaesthesia [Unknown]
  - Weight decreased [Unknown]
  - Alopecia [Unknown]
  - Skin discolouration [Not Recovered/Not Resolved]
  - Memory impairment [Unknown]
  - Pruritus [Not Recovered/Not Resolved]
  - Insomnia [Not Recovered/Not Resolved]
  - Constipation [Not Recovered/Not Resolved]
  - Abdominal discomfort [Unknown]
  - Fatigue [Not Recovered/Not Resolved]
  - Diarrhoea [Recovering/Resolving]
  - Dysgeusia [Not Recovered/Not Resolved]
  - Anaemia [Recovering/Resolving]
  - Nausea [Not Recovered/Not Resolved]
  - Decreased appetite [Not Recovered/Not Resolved]
  - Asthenia [Not Recovered/Not Resolved]
  - Product dose omission issue [Unknown]

NARRATIVE: CASE EVENT DATE: 20190101
